APPROVED DRUG PRODUCT: ZYCLARA
Active Ingredient: IMIQUIMOD
Strength: 3.75%
Dosage Form/Route: CREAM;TOPICAL
Application: N022483 | Product #001 | TE Code: AB
Applicant: BAUSCH HEALTH US LLC
Approved: Mar 25, 2010 | RLD: Yes | RS: Yes | Type: RX

PATENTS:
Patent 10238645 | Expires: Aug 18, 2029
Patent 10238645 | Expires: Aug 18, 2029
Patent 8299109 | Expires: Dec 11, 2029
Patent 8598196 | Expires: Aug 18, 2029
Patent 11202752 | Expires: Apr 30, 2030
Patent 11202752 | Expires: Apr 30, 2030
Patent 10238644 | Expires: Dec 11, 2029
Patent 11850245 | Expires: Apr 30, 2030
Patent 11850245 | Expires: Apr 30, 2030
Patent 10918635 | Expires: Apr 30, 2030
Patent 10918635 | Expires: Apr 30, 2030
Patent 8598196 | Expires: Aug 18, 2029
Patent 8236816 | Expires: Dec 11, 2029